FAERS Safety Report 17172531 (Version 1)
Quarter: 2019Q4

REPORT INFORMATION
  Report Type: Spontaneous
  Country: US (occurrence: US)
  Receive Date: 20191218
  Receipt Date: 20191218
  Transmission Date: 20200122
  Serious: Yes (Life-Threatening, Hospitalization, Other)
  Sender: FDA-Public Use
  Company Number: None

PATIENT
  Age: 33 Year
  Sex: Female
  Weight: 78.02 kg

DRUGS (4)
  1. EFFEXOR XR [Concomitant]
     Active Substance: VENLAFAXINE HYDROCHLORIDE
  2. MULTIVITE [Concomitant]
     Active Substance: VITAMINS
  3. KYLEENA [Suspect]
     Active Substance: LEVONORGESTREL
     Dates: start: 20190708, end: 20190709
  4. FLONASE [Concomitant]
     Active Substance: FLUTICASONE PROPIONATE

REACTIONS (5)
  - Acute respiratory distress syndrome [None]
  - Abdominal sepsis [None]
  - Acute kidney injury [None]
  - Device dislocation [None]
  - Renal tubular necrosis [None]

NARRATIVE: CASE EVENT DATE: 20190709
